FAERS Safety Report 12429512 (Version 1)
Quarter: 2016Q2

REPORT INFORMATION
  Report Type: Spontaneous
  Country: US (occurrence: US)
  Receive Date: 20160602
  Receipt Date: 20160602
  Transmission Date: 20160815
  Serious: Yes (Other)
  Sender: FDA-Public Use
  Company Number: US-FRI-1000085084

PATIENT
  Sex: Female
  Weight: 68 kg

DRUGS (4)
  1. CYTOMEL [Concomitant]
     Active Substance: LIOTHYRONINE SODIUM
  2. NAMENDA [Suspect]
     Active Substance: MEMANTINE HYDROCHLORIDE
     Indication: THINKING ABNORMAL
  3. SYNTHROID [Concomitant]
     Active Substance: LEVOTHYROXINE SODIUM
  4. NAMENDA [Suspect]
     Active Substance: MEMANTINE HYDROCHLORIDE
     Indication: FEELING ABNORMAL
     Dosage: 10MG
     Route: 048

REACTIONS (5)
  - Constipation [Unknown]
  - Dysuria [Recovered/Resolved]
  - Off label use [Not Recovered/Not Resolved]
  - Back pain [Recovered/Resolved]
  - Nephrolithiasis [Recovered/Resolved]
